FAERS Safety Report 22297996 (Version 1)
Quarter: 2023Q2

REPORT INFORMATION
  Report Type: Spontaneous
  Country: US (occurrence: US)
  Receive Date: 20230509
  Receipt Date: 20230509
  Transmission Date: 20230722
  Serious: No
  Sender: FDA-Public Use
  Company Number: US-Vifor (International) Inc.-VIT-2023-02754

PATIENT
  Age: 53 Year
  Sex: Male

DRUGS (4)
  1. MIRCERA [Suspect]
     Active Substance: METHOXY POLYETHYLENE GLYCOL-EPOETIN BETA
     Indication: Product used for unknown indication
     Dates: start: 20221229
  2. DIANEAL [Suspect]
     Active Substance: CALCIUM CHLORIDE\DEXTROSE\MAGNESIUM CHLORIDE\SODIUM CHLORIDE\SODIUM LACTATE
     Indication: End stage renal disease
     Dosage: AMBUFLEX, MODALITY: APD (AUTOMATED PERITONEAL DIALYSIS)
     Route: 033
     Dates: start: 20220408
  3. DIANEAL [Suspect]
     Active Substance: CALCIUM CHLORIDE\DEXTROSE\MAGNESIUM CHLORIDE\SODIUM CHLORIDE\SODIUM LACTATE
     Dosage: AMBUFLEX, MODALITY: APD (AUTOMATED PERITONEAL DIALYSIS)
     Route: 033
     Dates: start: 20220408
  4. DIANEAL [Suspect]
     Active Substance: CALCIUM CHLORIDE\DEXTROSE\MAGNESIUM CHLORIDE\SODIUM CHLORIDE\SODIUM LACTATE
     Dosage: AMBUFLEX, MODALITY: APD (AUTOMATED PERITONEAL DIALYSIS)
     Route: 033
     Dates: start: 20220408

REACTIONS (4)
  - Rash pruritic [Unknown]
  - Rash erythematous [Unknown]
  - Exfoliative rash [Unknown]
  - Drug hypersensitivity [Unknown]

NARRATIVE: CASE EVENT DATE: 20221229
